FAERS Safety Report 9047098 (Version 1)
Quarter: 2013Q1

REPORT INFORMATION
  Report Type: Spontaneous
  Country: US (occurrence: None)
  Receive Date: 20130130
  Receipt Date: 20130130
  Transmission Date: 20140127
  Serious: Yes (Other)
  Sender: FDA-Public Use
  Company Number: None

PATIENT
  Sex: Male

DRUGS (1)
  1. REVLIMID 10MG CELGENE [Suspect]
     Indication: PLASMA CELL MYELOMA
     Dates: start: 201210

REACTIONS (1)
  - Deep vein thrombosis [None]
